FAERS Safety Report 4301343-2 (Version None)
Quarter: 2004Q1

REPORT INFORMATION
  Report Type: 
  Country: None (occurrence: None)
  Receive Date: 20040223
  Receipt Date: 20030326
  Transmission Date: 20041129
  Serious: No
  Sender: FDA-Public Use
  Company Number: US-GLAXOSMITHKLINE-A0401995A

PATIENT
  Age: 49 Year
  Sex: Female
  Weight: 77.3 kg

DRUGS (1)
  1. NAVELBINE [Suspect]
     Indication: OVARIAN CANCER
     Route: 042
     Dates: start: 20030321

REACTIONS (3)
  - EATING DISORDER [None]
  - PAIN IN JAW [None]
  - SPEECH DISORDER [None]
